FAERS Safety Report 24636703 (Version 2)
Quarter: 2024Q4

REPORT INFORMATION
  Report Type: Report from Study
  Country: AE (occurrence: AE)
  Receive Date: 20241119
  Receipt Date: 20241121
  Transmission Date: 20250115
  Serious: Yes (Other)
  Sender: ROCHE
  Company Number: AE-ROCHE-3323854

PATIENT
  Age: 3 Year
  Sex: Female

DRUGS (3)
  1. EVRYSDI [Suspect]
     Active Substance: RISDIPLAM
     Indication: Spinal muscular atrophy
     Dosage: NEW DOSE WAS 2.9 ML
     Route: 048
     Dates: start: 20220210
  2. EVRYSDI [Suspect]
     Active Substance: RISDIPLAM
     Route: 048
  3. EVRYSDI [Suspect]
     Active Substance: RISDIPLAM
     Dosage: NEW DOSE WAS 2.9 ML
     Route: 048

REACTIONS (5)
  - Weight increased [Unknown]
  - Respiratory failure [Unknown]
  - Asthenia [Unknown]
  - Hypoxic-ischaemic encephalopathy [Unknown]
  - Developmental delay [Unknown]

NARRATIVE: CASE EVENT DATE: 20241118
